FAERS Safety Report 20736376 (Version 1)
Quarter: 2022Q2

REPORT INFORMATION
  Report Type: Spontaneous
  Country: AR (occurrence: AR)
  Receive Date: 20220421
  Receipt Date: 20220421
  Transmission Date: 20220721
  Serious: Yes (Hospitalization, Other)
  Sender: FDA-Public Use
  Company Number: AR-PFIZER INC-202101796302

PATIENT
  Age: 50 Year
  Sex: Female

DRUGS (1)
  1. INFLIXIMAB [Suspect]
     Active Substance: INFLIXIMAB
     Dosage: UNKNOWN

REACTIONS (5)
  - Pneumonia bacterial [Unknown]
  - Immunodeficiency [Unknown]
  - Psoriasis [Unknown]
  - Kidney infection [Unknown]
  - Pyrexia [Unknown]
